FAERS Safety Report 7052285-3 (Version None)
Quarter: 2010Q4

REPORT INFORMATION
  Report Type: 
  Country: None (occurrence: None)
  Receive Date: 20101019
  Receipt Date: 20101013
  Transmission Date: 20110411
  Serious: No
  Sender: FDA-Public Use
  Company Number: US-JNJFOC-20100306412

PATIENT
  Age: 83 Year
  Sex: Female
  Weight: 49.9 kg

DRUGS (11)
  1. TYLENOL (CAPLET) [Suspect]
     Indication: TEMPOROMANDIBULAR JOINT SYNDROME
     Route: 048
     Dates: start: 20100311, end: 20100318
  2. TYLENOL (CAPLET) [Suspect]
     Route: 048
     Dates: start: 20100311, end: 20100318
  3. SYNTHROID [Concomitant]
     Indication: THYROID DISORDER
     Route: 065
  4. CALCIUM, MAGNESIUM, ZINC [Concomitant]
     Indication: MEDICAL DIET
     Route: 065
  5. ASCORBIC ACID [Concomitant]
     Indication: MEDICAL DIET
     Route: 065
  6. LOPRESSOR [Concomitant]
     Indication: HYPERTENSION
     Route: 065
  7. VITAMIN D [Concomitant]
     Indication: MEDICAL DIET
     Route: 065
  8. LUTEIN [Concomitant]
     Indication: MEDICAL DIET
     Route: 065
  9. ACIDOPHILUS [Concomitant]
     Indication: MEDICAL DIET
     Route: 065
  10. VITAMIN B-12 [Concomitant]
     Indication: MEDICAL DIET
     Route: 065
  11. MULTI-VITAMINS [Concomitant]
     Indication: MEDICAL DIET
     Route: 065

REACTIONS (2)
  - GAIT DISTURBANCE [None]
  - VISION BLURRED [None]
